FAERS Safety Report 24914156 (Version 3)
Quarter: 2025Q2

REPORT INFORMATION
  Report Type: Spontaneous
  Country: BR (occurrence: BR)
  Receive Date: 20250202
  Receipt Date: 20250430
  Transmission Date: 20250716
  Serious: Yes (Other)
  Sender: ABBVIE
  Company Number: BR-ABBOTT-2025A-1395885

PATIENT
  Sex: Female
  Weight: 57 kg

DRUGS (3)
  1. SYNTHROID [Suspect]
     Active Substance: LEVOTHYROXINE SODIUM
     Indication: Hypothyroidism
     Dosage: EXPIRATION DATE: 24-JUL-2025?MANUFACTURE DATE: 24-JAN-2024?EXPIRATION DATE: 15NOV2024?MANUFACTURE DA
     Route: 048
     Dates: start: 2009
  2. SYNTHROID [Suspect]
     Active Substance: LEVOTHYROXINE SODIUM
     Indication: Hypothyroidism
     Route: 048
  3. SIMVASTATIN [Concomitant]
     Active Substance: SIMVASTATIN
     Indication: Blood cholesterol
     Route: 065

REACTIONS (5)
  - Hysterectomy [Unknown]
  - Expired product administered [Unknown]
  - Incorrect dose administered [Unknown]
  - Mastectomy [Unknown]
  - Product quality issue [Unknown]
